FAERS Safety Report 9958933 (Version 1)
Quarter: 2014Q1

REPORT INFORMATION
  Report Type: Report from Study
  Country: US (occurrence: US)
  Receive Date: 20140305
  Receipt Date: 20140305
  Transmission Date: 20141002
  Serious: No
  Sender: FDA-Public Use
  Company Number: US-ABBVIE-13P-163-1102189-00

PATIENT
  Age: 46 Year
  Sex: Male

DRUGS (5)
  1. HUMIRA [Suspect]
     Indication: CROHN^S DISEASE
     Dates: start: 201302
  2. LOMOTIL [Concomitant]
     Indication: DIARRHOEA
  3. BENTYL [Concomitant]
     Indication: DIARRHOEA
  4. BENTYL [Concomitant]
     Indication: ABDOMINAL PAIN UPPER
  5. OXYCONTIN [Concomitant]
     Indication: GASTROINTESTINAL PAIN

REACTIONS (2)
  - Painful defaecation [Not Recovered/Not Resolved]
  - Nausea [Not Recovered/Not Resolved]
